FAERS Safety Report 6936027-5 (Version None)
Quarter: 2010Q3

REPORT INFORMATION
  Report Type: 
  Country: None (occurrence: None)
  Receive Date: 20100823
  Receipt Date: 20091013
  Transmission Date: 20110219
  Serious: No
  Sender: FDA-Public Use
  Company Number: US-KINGPHARMUSA00001-K200901267

PATIENT
  Sex: Female

DRUGS (1)
  1. SEPTRA [Suspect]
     Dosage: UNK
     Dates: start: 19800101

REACTIONS (1)
  - HYPERSENSITIVITY [None]
